FAERS Safety Report 5335809-3 (Version None)
Quarter: 2007Q2

REPORT INFORMATION
  Report Type: 
  Country: None (occurrence: None)
  Receive Date: 20070322
  Receipt Date: 20070104
  Transmission Date: 20071010
  Serious: No
  Sender: FDA-Public Use
  Company Number: US-CVT-070013

PATIENT
  Age: 82 Year
  Sex: Male
  Weight: 79.4 kg

DRUGS (14)
  1. RANEXA [Suspect]
     Indication: ANGINA PECTORIS
     Dosage: 500 MG, QD
     Dates: start: 20061101, end: 20061101
  2. RANEXA [Suspect]
     Indication: ANGINA PECTORIS
     Dosage: 500 MG, QD
     Dates: start: 20061214
  3. ISOSORBIDE (ISOSORBIDE) [Concomitant]
  4. CARDIZEM [Concomitant]
  5. ZETIA [Concomitant]
  6. PROTONIX [Concomitant]
  7. METOPROLOL TARTRATE [Concomitant]
  8. SIMVASTATIN [Concomitant]
  9. LISINOPRIL [Concomitant]
  10. GABAPENTIN [Concomitant]
  11. ASPIRIN [Concomitant]
  12. CALCIUM (CALCIUM CARBONATE, CALCIUM LACTOGLUCONATE) [Concomitant]
  13. VITAMIN B COMPLEX (CALCIUM PANTOTHENATE, NICOTINAMIDE, PYRIDOXINE HYDR [Concomitant]
  14. METROGEL 1% (METRONIDAZOLE) [Concomitant]

REACTIONS (3)
  - BALANCE DISORDER [None]
  - DISORIENTATION [None]
  - DIZZINESS [None]
